FAERS Safety Report 8231017-7 (Version None)
Quarter: 2012Q1

REPORT INFORMATION
  Report Type: 
  Country: None (occurrence: None)
  Receive Date: 20120323
  Receipt Date: 20120316
  Transmission Date: 20120608
  Serious: Yes (Hospitalization)
  Sender: FDA-Public Use
  Company Number: CZ-PFIZER INC-2012070845

PATIENT
  Age: 62 Year
  Sex: Male

DRUGS (2)
  1. BETAXOLOL [Concomitant]
     Dosage: HALF TABLET IN THE MORNING
  2. CLINDAMYCIN HCL [Suspect]
     Indication: TONSILLITIS
     Dosage: 150 MG, 3X/DAY
     Route: 048
     Dates: start: 20120214, end: 20120224

REACTIONS (1)
  - DRUG ERUPTION [None]
